FAERS Safety Report 21388919 (Version 1)
Quarter: 2022Q3

REPORT INFORMATION
  Report Type: Spontaneous
  Country: GB (occurrence: GB)
  Receive Date: 20220929
  Receipt Date: 20220929
  Transmission Date: 20221027
  Serious: Yes (Disabling, Other)
  Sender: FDA-Public Use
  Company Number: GB-MHRA-ADR 27289624

PATIENT
  Age: 29 Year
  Sex: Female
  Weight: 56 kg

DRUGS (3)
  1. METRONIDAZOLE [Suspect]
     Active Substance: METRONIDAZOLE
     Dosage: FOR 10 DAYS
     Route: 065
     Dates: start: 20220826
  2. METOCLOPRAMIDE [Concomitant]
     Active Substance: METOCLOPRAMIDE
     Indication: Product used for unknown indication
     Dosage: 1 DOSAGE FORM, 3 TIMES A DAY
     Route: 065
     Dates: start: 20220613, end: 20220711
  3. FERROUS FUMARATE [Concomitant]
     Active Substance: FERROUS FUMARATE
     Indication: Product used for unknown indication
     Dosage: 1 DOSAGE FORM, 3 TIMES A DAY
     Route: 065
     Dates: start: 20220617, end: 20220715

REACTIONS (5)
  - Mania [Unknown]
  - Euphoric mood [Unknown]
  - Self-injurious ideation [Unknown]
  - Thinking abnormal [Unknown]
  - Illusion [Unknown]

NARRATIVE: CASE EVENT DATE: 20220909
